FAERS Safety Report 10535122 (Version 3)
Quarter: 2015Q1

REPORT INFORMATION
  Report Type: Spontaneous
  Country: BR (occurrence: BR)
  Receive Date: 20141022
  Receipt Date: 20150313
  Transmission Date: 20150720
  Serious: Yes (Other)
  Sender: FDA-Public Use
  Company Number: BR-GLAXOSMITHKLINE-BR2014GSK006966

PATIENT
  Age: 4 Year
  Sex: Male
  Weight: 16 kg

DRUGS (5)
  1. SERETIDE [Suspect]
     Active Substance: FLUTICASONE FUROATE\SALMETEROL XINAFOATE
     Indication: ASTHMA
     Dosage: 1 UNK, BID
     Route: 055
     Dates: start: 20140914, end: 20140929
  2. AZITHROMYCIN [Concomitant]
     Active Substance: AZITHROMYCIN ANHYDROUS
  3. AEROLIN [Suspect]
     Active Substance: ALBUTEROL
     Indication: ASTHMA
     Dosage: UNK
     Route: 065
  4. MONTELAIR [Concomitant]
     Active Substance: MONTELUKAST SODIUM
     Indication: ASTHMA
     Route: 065
  5. KOIDE D [Concomitant]
     Indication: ASTHMA
     Route: 065

REACTIONS (8)
  - Asthmatic crisis [Recovered/Resolved]
  - Overdose [Recovered/Resolved]
  - Skin disorder [Not Recovered/Not Resolved]
  - Hypersensitivity [Recovered/Resolved]
  - Immunoglobulins increased [Unknown]
  - Candida infection [Recovered/Resolved]
  - Dysphonia [Recovered/Resolved]
  - Oral mucosal erythema [Recovered/Resolved]

NARRATIVE: CASE EVENT DATE: 20141118
